FAERS Safety Report 8863006 (Version 1)
Quarter: 2012Q4

REPORT INFORMATION
  Report Type: 
  Country: US (occurrence: US)
  Receive Date: 20121026
  Receipt Date: 20121026
  Transmission Date: 20130627
  Serious: No
  Sender: FDA-Public Use
  Company Number: US-ALLERGAN-1202807US

PATIENT
  Age: 60 Year
  Sex: Female

DRUGS (2)
  1. ALPHAGAN P [Suspect]
     Indication: INCREASED INTRAOCULAR PRESSURE
     Dosage: 2 Gtt, bid
     Route: 047
     Dates: start: 20120213, end: 20120217
  2. MULTIVITAMINS [Concomitant]
     Indication: DRUG USE FOR UNKNOWN INDICATION

REACTIONS (4)
  - Fatigue [Unknown]
  - Rash erythematous [Recovering/Resolving]
  - Rash erythematous [Unknown]
  - Rash pruritic [Not Recovered/Not Resolved]
